FAERS Safety Report 9164375 (Version 1)
Quarter: 2013Q1

REPORT INFORMATION
  Report Type: Spontaneous
  Country: US (occurrence: US)
  Receive Date: 20130315
  Receipt Date: 20130315
  Transmission Date: 20140127
  Serious: No
  Sender: FDA-Public Use
  Company Number: US-BIOGENIDEC-2013BI024121

PATIENT
  Age: 82 Year
  Sex: Female

DRUGS (2)
  1. TYSABRI [Suspect]
     Indication: MULTIPLE SCLEROSIS
     Route: 042
     Dates: start: 20080227
  2. AVONEX [Concomitant]
     Indication: MULTIPLE SCLEROSIS
     Route: 030
     Dates: start: 20020101

REACTIONS (6)
  - Cerebral ischaemia [Unknown]
  - Ataxia [Unknown]
  - Disturbance in attention [Unknown]
  - Back pain [Not Recovered/Not Resolved]
  - Cardiac neoplasm unspecified [Not Recovered/Not Resolved]
  - Asthenia [Unknown]
